FAERS Safety Report 9300138 (Version 1)
Quarter: 2012Q4

REPORT INFORMATION
  Report Type: Spontaneous
  Country: FR (occurrence: None)
  Receive Date: 20121109
  Receipt Date: 20121109
  Transmission Date: 20130627
  Serious: Yes (Hospitalization, Other)
  Sender: FDA-Public Use
  Company Number: 2012S1000346

PATIENT
  Age: 56 Year
  Sex: Male

DRUGS (15)
  1. CUBICIN (DAPTOMYCIN) [Suspect]
     Indication: ENDOCARDITIS
     Route: 042
     Dates: start: 20120210, end: 20120305
  2. ESOMEPRAZOLE MAGNESIUM. [Suspect]
     Dates: start: 20120211, end: 20120305
  3. DOLIPRANE [Suspect]
     Route: 048
     Dates: start: 20120301, end: 20120305
  4. CEFOTAXIME SODIUM [Suspect]
     Indication: ENDOCARDITIS
     Route: 042
     Dates: start: 20120210, end: 20120305
  5. GENTAMICIN [Concomitant]
  6. SULFATE [Concomitant]
  7. AMLOR [Concomitant]
  8. ROSUVASTATIN [Concomitant]
  9. MINERAL [Concomitant]
  10. SUPPLEMENTS [Concomitant]
  11. HEPARIN [Concomitant]
  12. CARDENSIEL [Concomitant]
  13. RAMIPRIL [Concomitant]
  14. ACETYLSALICYLATE LYSINE [Concomitant]
  15. ALL OTHER THERAPEUTIC PRODUCTS [Concomitant]

REACTIONS (2)
  - Agranulocytosis [None]
  - Aggression [None]
